FAERS Safety Report 9819344 (Version 1)
Quarter: 2014Q1

REPORT INFORMATION
  Report Type: Spontaneous
  Country: CL (occurrence: CL)
  Receive Date: 20140115
  Receipt Date: 20140115
  Transmission Date: 20141002
  Serious: Yes (Other)
  Sender: FDA-Public Use
  Company Number: CL-PFIZER INC-2014011268

PATIENT
  Age: 51 Year
  Sex: Female

DRUGS (6)
  1. LYRICA [Suspect]
     Indication: POLYNEUROPATHY
     Dosage: 300 MG, 1X/DAY
     Route: 048
     Dates: start: 200506
  2. CELEBRA [Concomitant]
  3. LOSARTAN [Concomitant]
  4. LEVOCETIRIZINE [Concomitant]
  5. METFORMIN [Concomitant]
  6. LORAZEPAM [Concomitant]

REACTIONS (7)
  - Brain injury [Not Recovered/Not Resolved]
  - Visual impairment [Not Recovered/Not Resolved]
  - Retinopathy [Not Recovered/Not Resolved]
  - Maculopathy [Not Recovered/Not Resolved]
  - Blood uric acid increased [Not Recovered/Not Resolved]
  - Glucose tolerance impaired [Not Recovered/Not Resolved]
  - Hypertension [Not Recovered/Not Resolved]
